FAERS Safety Report 25733160 (Version 4)
Quarter: 2025Q4

REPORT INFORMATION
  Report Type: Spontaneous
  Country: US (occurrence: US)
  Receive Date: 20250828
  Receipt Date: 20251222
  Transmission Date: 20260117
  Serious: No
  Sender: SANDOZ
  Company Number: US-SANDOZ-SDZ2025US061154

PATIENT
  Sex: Female
  Weight: 49.43 kg

DRUGS (2)
  1. COMBIPATCH [Suspect]
     Active Substance: ESTRADIOL\NORETHINDRONE ACETATE
     Indication: Menopause
     Dosage: 0.05/0.14 MG, EVERY MONDAY AND THURSDAY
  2. VITAMIN D [Concomitant]
     Active Substance: VITAMIN D NOS
     Indication: Product used for unknown indication
     Dosage: UNK

REACTIONS (9)
  - Heart rate irregular [Recovered/Resolved]
  - Heart rate increased [Recovered/Resolved]
  - Application site scar [Not Recovered/Not Resolved]
  - Dyspepsia [Not Recovered/Not Resolved]
  - Application site rash [Unknown]
  - Application site hypersensitivity [Unknown]
  - Application site erythema [Not Recovered/Not Resolved]
  - Application site pruritus [Not Recovered/Not Resolved]
  - Application site pain [Not Recovered/Not Resolved]

NARRATIVE: CASE EVENT DATE: 20250101
